FAERS Safety Report 17213780 (Version 2)
Quarter: 2020Q1

REPORT INFORMATION
  Report Type: Spontaneous
  Country: US (occurrence: US)
  Receive Date: 20191230
  Receipt Date: 20200103
  Transmission Date: 20200409
  Serious: Yes (Other)
  Sender: FDA-Public Use
  Company Number: US-PFIZER INC-2019555736

PATIENT
  Age: 35 Year
  Sex: Female

DRUGS (6)
  1. OTEZLA [Suspect]
     Active Substance: APREMILAST
     Indication: PSORIATIC ARTHROPATHY
     Dosage: 60 MG, 2X/DAY
     Route: 048
     Dates: start: 201908
  2. XELJANZ [Suspect]
     Active Substance: TOFACITINIB CITRATE
     Indication: ARTHRALGIA
  3. XELJANZ [Suspect]
     Active Substance: TOFACITINIB CITRATE
     Indication: RHEUMATOID FACTOR INCREASED
  4. OTEZLA [Suspect]
     Active Substance: APREMILAST
     Indication: ARTHRALGIA
  5. XELJANZ [Suspect]
     Active Substance: TOFACITINIB CITRATE
     Indication: PSORIATIC ARTHROPATHY
     Dosage: UNK
     Dates: start: 2019
  6. OTEZLA [Suspect]
     Active Substance: APREMILAST
     Indication: RHEUMATOID FACTOR INCREASED

REACTIONS (2)
  - Immunodeficiency [Unknown]
  - Sinusitis [Unknown]

NARRATIVE: CASE EVENT DATE: 201912
